FAERS Safety Report 20048945 (Version 1)
Quarter: 2021Q4

REPORT INFORMATION
  Report Type: Other
  Country: US (occurrence: None)
  Receive Date: 20211109
  Receipt Date: 20211109
  Transmission Date: 20220303
  Serious: Yes (Other)
  Sender: FDA-Public Use
  Company Number: US-ROCHE-2138445

PATIENT

DRUGS (4)
  1. RANIBIZUMAB [Suspect]
     Active Substance: RANIBIZUMAB
     Indication: Product used for unknown indication
     Route: 050
  2. BEVACIZUMAB [Suspect]
     Active Substance: BEVACIZUMAB
     Indication: Product used for unknown indication
     Route: 050
  3. AFLIBERCEPT [Suspect]
     Active Substance: AFLIBERCEPT
     Indication: Product used for unknown indication
     Route: 050
  4. PEGAPTANIB [Suspect]
     Active Substance: PEGAPTANIB
     Indication: Product used for unknown indication
     Route: 050

REACTIONS (4)
  - Bacterial endophthalmitis [Unknown]
  - Off label use [Unknown]
  - Transmission of an infectious agent via product [Unknown]
  - Off label use [Unknown]
